FAERS Safety Report 4778237-1 (Version None)
Quarter: 2005Q3

REPORT INFORMATION
  Report Type: 
  Country: None (occurrence: None)
  Receive Date: 20050923
  Receipt Date: 20050923
  Transmission Date: 20060218
  Serious: Yes (Other)
  Sender: FDA-Public Use
  Company Number: None

PATIENT
  Age: 45 Year
  Sex: Male
  Weight: 115.2 kg

DRUGS (22)
  1. TORADOL [Suspect]
  2. SODIUM FLUORIDE [Concomitant]
  3. CHLORHEXIDINE GLUCONATE [Concomitant]
  4. LORATADINE [Concomitant]
  5. BENZTROPINE MESYLATE [Concomitant]
  6. DIVALPROEX SODIUM [Concomitant]
  7. HALOPERIDOL [Concomitant]
  8. CYCLOBENZAPRINE HCL [Concomitant]
  9. KETOROLAC TROMETHAMINE [Concomitant]
  10. KETOROLAC TROMETHAMINE [Concomitant]
  11. LISINOPRIL [Concomitant]
  12. FLUNISOLIDE [Concomitant]
  13. HALOPERIDOL [Concomitant]
  14. LORAZEPAM [Concomitant]
  15. DIVALPROEX SODIUM [Concomitant]
  16. OMEPRAZOLE [Concomitant]
  17. BENZTROPINE MESYLATE [Concomitant]
  18. LISINOPRIL [Concomitant]
  19. ALOH/MGOH/SIMTH XTRA STRENGTH LIQ SUSP [Concomitant]
  20. HYDROMORPHONE [Concomitant]
  21. CEFTRIAXONE [Concomitant]
  22. PANTOPRAZOLE [Concomitant]

REACTIONS (1)
  - GASTROINTESTINAL DISORDER [None]
